FAERS Safety Report 17862253 (Version 1)
Quarter: 2020Q2

REPORT INFORMATION
  Report Type: Spontaneous
  Country: JP (occurrence: JP)
  Receive Date: 20200604
  Receipt Date: 20200604
  Transmission Date: 20200714
  Serious: No
  Sender: FDA-Public Use
  Company Number: JP-ALLERGAN-2021681US

PATIENT
  Age: 48 Year
  Sex: Female

DRUGS (14)
  1. ASENAPINE MALEATE - BP [Suspect]
     Active Substance: ASENAPINE MALEATE
     Indication: SCHIZOPHRENIA
     Dosage: 5 MG
     Route: 060
     Dates: start: 20200522, end: 20200522
  2. RISPERIDONE. [Concomitant]
     Active Substance: RISPERIDONE
  3. BIPERIDEN [Concomitant]
     Active Substance: BIPERIDEN
  4. BEZAFIBRATE [Concomitant]
     Active Substance: BEZAFIBRATE
  5. MAGNESIUM OXIDE. [Concomitant]
     Active Substance: MAGNESIUM OXIDE
  6. LOXOPROFEN SODIUM [Concomitant]
     Active Substance: LOXOPROFEN SODIUM
  7. LACTOSE [Concomitant]
     Active Substance: LACTOSE
  8. FEBUXOSTAT. [Concomitant]
     Active Substance: FEBUXOSTAT
  9. REBAMIPIDE [Concomitant]
     Active Substance: REBAMIPIDE
  10. BLONANSERIN [Concomitant]
     Active Substance: BLONANSERIN
  11. BROTIZOLAM [Concomitant]
     Active Substance: BROTIZOLAM
  12. LEVOMEPROMAZINE MALEATE [Concomitant]
     Active Substance: LEVOMEPROMAZINE MALEATE
  13. CLONAZEPAM. [Concomitant]
     Active Substance: CLONAZEPAM
  14. ZOLPIDEM TARTRATE. [Concomitant]
     Active Substance: ZOLPIDEM TARTRATE

REACTIONS (3)
  - Hypoaesthesia oral [Unknown]
  - Akathisia [Unknown]
  - Swollen tongue [Unknown]

NARRATIVE: CASE EVENT DATE: 20200522
